FAERS Safety Report 4391952-7 (Version None)
Quarter: 2004Q3

REPORT INFORMATION
  Report Type: 
  Country: None (occurrence: None)
  Receive Date: 20040701
  Receipt Date: 20040611
  Transmission Date: 20050211
  Serious: Yes (Other)
  Sender: FDA-Public Use
  Company Number: USA040567135

PATIENT
  Age: 94 Year
  Sex: Male

DRUGS (5)
  1. FORTEO [Suspect]
     Indication: OSTEOPOROSIS
     Dosage: 20 UG DAY
     Dates: start: 20040201
  2. HIGH BLOOD PRESSURE MEDICINE [Concomitant]
  3. CENTRUM [Concomitant]
  4. ASPIRIN [Concomitant]
  5. CALCIUM CARBONATE [Concomitant]

REACTIONS (1)
  - BLOOD PARATHYROID HORMONE INCREASED [None]
